FAERS Safety Report 18920244 (Version 1)
Quarter: 2021Q1

REPORT INFORMATION
  Report Type: Spontaneous
  Country: DK (occurrence: DK)
  Receive Date: 20210222
  Receipt Date: 20210222
  Transmission Date: 20210420
  Serious: Yes (Hospitalization)
  Sender: FDA-Public Use
  Company Number: DK-TEVA-2021-DK-1881556

PATIENT
  Age: 74 Year
  Sex: Female

DRUGS (3)
  1. TRAMADOL. [Concomitant]
     Active Substance: TRAMADOL
     Indication: PROCEDURAL PAIN
     Dosage: UNIT DOSE : 200 MG
     Dates: start: 20180115
  2. GABAPENTIN. [Suspect]
     Active Substance: GABAPENTIN
     Indication: PROCEDURAL PAIN
     Dosage: UNIT DOSE : 900 MG
     Dates: start: 20180115
  3. KETOGAN (DIMETHYLAMINODIPHENYLBUTENE HCL\KETOBEMIDONE) [Suspect]
     Active Substance: DIMETHYLAMINODIPHENYLBUTENE HYDROCHLORIDE\KETOBEMIDONE HYDROCHLORIDE
     Indication: PROCEDURAL PAIN
     Dosage: STRENGTH: 5 + 25 MG , UNIT DOSE : 4 DF
     Dates: start: 20180115

REACTIONS (2)
  - Fall [Recovered/Resolved with Sequelae]
  - Dizziness [Recovered/Resolved]

NARRATIVE: CASE EVENT DATE: 20180116
